FAERS Safety Report 24320825 (Version 1)
Quarter: 2024Q3

REPORT INFORMATION
  Report Type: Spontaneous
  Country: US (occurrence: US)
  Receive Date: 20240915
  Receipt Date: 20240915
  Transmission Date: 20241016
  Serious: No
  Sender: SANOFI AVENTIS
  Company Number: US-SA-2024SA264627

PATIENT
  Sex: Female
  Weight: 79.55 kg

DRUGS (2)
  1. DUPIXENT [Suspect]
     Active Substance: DUPILUMAB
     Indication: Dermatitis atopic
     Dosage: 300 MG, QOW
     Route: 058
  2. TEZSPIRE [Concomitant]
     Active Substance: TEZEPELUMAB-EKKO

REACTIONS (4)
  - Skin haemorrhage [Not Recovered/Not Resolved]
  - Pain of skin [Not Recovered/Not Resolved]
  - Skin burning sensation [Unknown]
  - Pruritus [Unknown]
